FAERS Safety Report 21714682 (Version 1)
Quarter: 2022Q4

REPORT INFORMATION
  Report Type: Spontaneous
  Country: US (occurrence: None)
  Receive Date: 20221210
  Receipt Date: 20221210
  Transmission Date: 20230113
  Serious: Yes (unspecified)
  Sender: FDA-Public Use
  Company Number: None

PATIENT
  Age: 18 Year
  Sex: Female
  Weight: 48.6 kg

DRUGS (3)
  1. CLOZAPINE [Suspect]
     Active Substance: CLOZAPINE
     Indication: Schizophrenia
     Dates: start: 20200626
  2. CLOZAPINE [Concomitant]
     Active Substance: CLOZAPINE
  3. CLOZAPINE [Concomitant]
     Active Substance: CLOZAPINE

REACTIONS (4)
  - Product monitoring error [None]
  - Product dispensing issue [None]
  - Product label confusion [None]
  - Intentional product misuse [None]

NARRATIVE: CASE EVENT DATE: 20221209
